FAERS Safety Report 7110319-1 (Version None)
Quarter: 2010Q4

REPORT INFORMATION
  Report Type: 
  Country: None (occurrence: None)
  Receive Date: 20101118
  Receipt Date: 20101007
  Transmission Date: 20110411
  Serious: No
  Sender: FDA-Public Use
  Company Number: A0885453A

PATIENT
  Age: 64 Year
  Sex: Male

DRUGS (2)
  1. COREG CR [Suspect]
     Dosage: 40MG TWICE PER DAY
     Route: 048
     Dates: start: 20091201
  2. UNKNOWN [Concomitant]

REACTIONS (4)
  - HYPOAESTHESIA [None]
  - PAIN IN EXTREMITY [None]
  - PARAESTHESIA [None]
  - PERIPHERAL COLDNESS [None]
